FAERS Safety Report 9061627 (Version 1)
Quarter: 2013Q1

REPORT INFORMATION
  Report Type: Spontaneous
  Country: US (occurrence: None)
  Receive Date: 20130118
  Receipt Date: 20130118
  Transmission Date: 20140127
  Serious: Yes (Death)
  Sender: FDA-Public Use
  Company Number: DAV-AE-DIA-13-01

PATIENT
  Age: 48 Year
  Sex: Female

DRUGS (1)
  1. DIAZEPAM [Suspect]
     Dosage: UNKNOWN,   UNKNOWN

REACTIONS (4)
  - Sudden cardiac death [None]
  - Acute myocardial infarction [None]
  - Acute coronary syndrome [None]
  - Arteriosclerosis coronary artery [None]
